FAERS Safety Report 8207155-1 (Version None)
Quarter: 2012Q1

REPORT INFORMATION
  Report Type: 
  Country: None (occurrence: None)
  Receive Date: 20120314
  Receipt Date: 20120308
  Transmission Date: 20120608
  Serious: No
  Sender: FDA-Public Use
  Company Number: US-PFIZER INC-2012062588

PATIENT
  Sex: Male
  Weight: 80.726 kg

DRUGS (8)
  1. BUSPAR [Concomitant]
     Indication: ANXIETY
  2. XANAX [Concomitant]
     Indication: DEPRESSION
     Dosage: UNK
  3. BUSPAR [Concomitant]
     Indication: DEPRESSION
     Dosage: UNK
  4. EFFEXOR XR [Suspect]
     Indication: DEPRESSION
     Dosage: 75 MG, UNK
     Route: 048
     Dates: start: 20120101
  5. XANAX [Concomitant]
     Indication: ANXIETY
  6. ZANAFLEX [Concomitant]
     Dosage: UNK
  7. EFFEXOR XR [Suspect]
     Indication: ANXIETY
  8. LORTAB [Concomitant]
     Dosage: UNK

REACTIONS (2)
  - DEPRESSION [None]
  - ANXIETY [None]
